FAERS Safety Report 4301855-1 (Version None)
Quarter: 2004Q1

REPORT INFORMATION
  Report Type: 
  Country: None (occurrence: None)
  Receive Date: 20040219
  Receipt Date: 20030115
  Transmission Date: 20041129
  Serious: Yes (Hospitalization)
  Sender: FDA-Public Use
  Company Number: PHEH2003US00775

PATIENT
  Age: 70 Year
  Sex: Female
  Weight: 72.6 kg

DRUGS (5)
  1. LESCOL [Suspect]
     Indication: BLOOD CHOLESTEROL INCREASED
     Dosage: 20 MG, QD, ORAL
     Route: 048
     Dates: start: 19970101, end: 20030115
  2. ALTACE [Suspect]
     Dosage: 5 MG, QD,
     Dates: end: 20030115
  3. FOSAMAX [Concomitant]
  4. ESTRACE [Concomitant]
  5. VIOXX [Concomitant]

REACTIONS (2)
  - PHARYNGEAL OEDEMA [None]
  - SWOLLEN TONGUE [None]
